FAERS Safety Report 10638255 (Version 2)
Quarter: 2015Q1

REPORT INFORMATION
  Report Type: Spontaneous
  Country: GB (occurrence: None)
  Receive Date: 20141204
  Receipt Date: 20150318
  Transmission Date: 20150720
  Serious: Yes (Death, Other)
  Sender: FDA-Public Use
  Company Number: FK201404379

PATIENT
  Age: 48 Year
  Sex: Male

DRUGS (9)
  1. ALLOPURINOL. [Concomitant]
     Active Substance: ALLOPURINOL
  2. FUROSEMIDE. [Concomitant]
     Active Substance: FUROSEMIDE
  3. TRIHEXYPHENIDYL [Concomitant]
     Active Substance: TRIHEXYPHENIDYL
  4. METHYLDOPA. [Concomitant]
     Active Substance: METHYLDOPA
  5. ZAPONEX (CLOZAPINE) (CLOZAPINE) [Suspect]
     Active Substance: CLOZAPINE
     Dosage: 100 MG, 1 D
     Route: 048
     Dates: start: 20140905, end: 20140930
  6. FLUOXETINE [Concomitant]
     Active Substance: FLUOXETINE\FLUOXETINE HYDROCHLORIDE
  7. ROPINIROLE. [Concomitant]
     Active Substance: ROPINIROLE
  8. CARBOPLATIN (MANUFACTURER UNKNOWN) (CARBOPLATIN) (CARBOPLATIN) [Suspect]
     Active Substance: CARBOPLATIN
     Indication: NEOPLASM MALIGNANT
     Route: 042
     Dates: start: 201409
  9. ETOPOSIDE (ETOPOSIDE) (ETOPOSIDE) [Suspect]
     Active Substance: ETOPOSIDE
     Indication: NEOPLASM MALIGNANT
     Route: 048
     Dates: start: 201409

REACTIONS (5)
  - Metastases to liver [None]
  - Thrombocytopenia [None]
  - Leukopenia [None]
  - Neutropenia [None]
  - Salivary gland cancer stage IV [None]

NARRATIVE: CASE EVENT DATE: 20141031
